FAERS Safety Report 6601096-9 (Version None)
Quarter: 2010Q1

REPORT INFORMATION
  Report Type: 
  Country: None (occurrence: None)
  Receive Date: 20100224
  Receipt Date: 20100224
  Transmission Date: 20100710
  Serious: No
  Sender: FDA-Public Use
  Company Number: None

PATIENT
  Sex: Female
  Weight: 86.1834 kg

DRUGS (2)
  1. METFORMIN HCL [Suspect]
     Indication: METABOLIC SYNDROME
     Dosage: 2TABS BID P.O.
     Route: 048
     Dates: start: 20070730
  2. METFORMIN HCL [Suspect]
     Indication: METABOLIC SYNDROME
     Dosage: 2TABS BID P.O.
     Route: 048
     Dates: start: 20071009

REACTIONS (2)
  - DIARRHOEA [None]
  - MUSCLE SPASMS [None]
